FAERS Safety Report 21785021 (Version 2)
Quarter: 2023Q1

REPORT INFORMATION
  Report Type: Spontaneous
  Country: US (occurrence: US)
  Receive Date: 20221227
  Receipt Date: 20230301
  Transmission Date: 20230417
  Serious: Yes (Hospitalization, Other)
  Sender: FDA-Public Use
  Company Number: US-PFIZER INC-202201389423

PATIENT
  Age: 75 Year
  Sex: Female
  Weight: 47.63 kg

DRUGS (1)
  1. VYNDAMAX [Suspect]
     Active Substance: TAFAMIDIS
     Indication: Amyloidosis
     Dosage: 61 MG, 1X/DAY
     Route: 048
     Dates: start: 201902

REACTIONS (5)
  - Balance disorder [Not Recovered/Not Resolved]
  - Skin ulcer [Recovering/Resolving]
  - Arthritis infective [Recovering/Resolving]
  - Limb injury [Recovering/Resolving]
  - Malaise [Not Recovered/Not Resolved]

NARRATIVE: CASE EVENT DATE: 20220101
